FAERS Safety Report 10750898 (Version 3)
Quarter: 2015Q1

REPORT INFORMATION
  Report Type: Spontaneous
  Country: JP (occurrence: JP)
  Receive Date: 20150130
  Receipt Date: 20150210
  Transmission Date: 20150721
  Serious: Yes (Death, Other)
  Sender: FDA-Public Use
  Company Number: JP-ROCHE-1529280

PATIENT
  Age: 51 Year
  Sex: Female
  Weight: 40 kg

DRUGS (14)
  1. AVASTIN [Suspect]
     Active Substance: BEVACIZUMAB
     Indication: BREAST CANCER METASTATIC
     Dosage: DOSAGE UNCERTAIN.
     Route: 041
     Dates: start: 20131009, end: 20140614
  2. LOXONIN [Concomitant]
     Active Substance: LOXOPROFEN SODIUM
     Indication: BREAST CANCER
     Route: 048
     Dates: start: 20140908, end: 20141222
  3. DENOTAS [Concomitant]
     Active Substance: CALCIUM CARBONATE\CHOLECALCIFEROL\MAGNESIUM CARBONATE
     Indication: PROPHYLAXIS
     Route: 048
     Dates: start: 20140825, end: 20141222
  4. MUCOSTA [Concomitant]
     Active Substance: REBAMIPIDE
     Indication: PROPHYLAXIS
     Route: 048
     Dates: start: 20140908, end: 20141222
  5. HERCEPTIN [Concomitant]
     Active Substance: TRASTUZUMAB
     Indication: BREAST CANCER
     Route: 065
     Dates: start: 20140825, end: 20141027
  6. KADCYLA [Suspect]
     Active Substance: ADO-TRASTUZUMAB EMTANSINE
     Indication: BREAST CANCER
     Route: 041
     Dates: start: 20141118, end: 20141118
  7. PACLITAXEL. [Suspect]
     Active Substance: PACLITAXEL
     Indication: BREAST CANCER METASTATIC
     Dosage: DOSAGE UNCERTAIN.
     Route: 041
     Dates: start: 20131009, end: 20140614
  8. HALAVEN [Concomitant]
     Active Substance: ERIBULIN MESYLATE
     Route: 065
     Dates: start: 20140825, end: 20141027
  9. URSO (JAPAN) [Concomitant]
     Indication: PROPHYLAXIS
     Route: 048
     Dates: start: 20141119, end: 20141222
  10. PURSENNID [Concomitant]
     Active Substance: SENNOSIDES A AND B
     Indication: CONSTIPATION
     Route: 048
     Dates: start: 20140908, end: 20141222
  11. NEXIUM [Concomitant]
     Active Substance: ESOMEPRAZOLE MAGNESIUM
     Indication: PROPHYLAXIS
     Route: 048
     Dates: start: 20140908, end: 20141222
  12. RANMARK [Concomitant]
     Active Substance: DENOSUMAB
     Route: 065
     Dates: start: 20140825, end: 20141118
  13. RINDERON V [Concomitant]
     Active Substance: BETAMETHASONE VALERATE
     Indication: BREAST CANCER
     Route: 048
     Dates: start: 20140908, end: 20141226
  14. LYRICA [Concomitant]
     Active Substance: PREGABALIN
     Indication: BREAST CANCER
     Route: 048
     Dates: start: 20140908, end: 20141222

REACTIONS (6)
  - Liver disorder [Fatal]
  - Drug-induced liver injury [Unknown]
  - Myalgia [Unknown]
  - Pain [Unknown]
  - Hypoaesthesia [Unknown]
  - Pyrexia [Unknown]

NARRATIVE: CASE EVENT DATE: 201402
